FAERS Safety Report 5637663-9 (Version None)
Quarter: 2008Q1

REPORT INFORMATION
  Report Type: 
  Country: None (occurrence: None)
  Receive Date: 20080220
  Receipt Date: 20080207
  Transmission Date: 20080703
  Serious: Yes (Other)
  Sender: FDA-Public Use
  Company Number: CERZ-11866

PATIENT
  Age: 57 Year
  Sex: Female
  Weight: 71 kg

DRUGS (6)
  1. CEREZYME [Suspect]
     Indication: GAUCHER'S DISEASE
     Dosage: 30 U/KG, Q2W, INTRAVENOUS
     Route: 042
     Dates: start: 19971101, end: 20060601
  2. CEREZYME [Suspect]
     Indication: GAUCHER'S DISEASE
     Dosage: 30 U/KG, Q2W, INTRAVENOUS
     Route: 042
     Dates: start: 20061001
  3. UNSPECIFIED STEROIDS UNKNOWN [Suspect]
     Indication: GASTROENTERITIS
  4. BONIVA [Suspect]
     Indication: OSTEOPOROSIS
  5. DIOVAN [Concomitant]
  6. NORVASC [Concomitant]

REACTIONS (9)
  - BLOOD GLUCOSE INCREASED [None]
  - BLOOD POTASSIUM DECREASED [None]
  - COLON CANCER [None]
  - CONDITION AGGRAVATED [None]
  - GASTROENTERITIS [None]
  - HEPATIC ENZYME INCREASED [None]
  - HYPERTENSION [None]
  - OSTEOPOROSIS [None]
  - TYPE 2 DIABETES MELLITUS [None]
